FAERS Safety Report 7654347-6 (Version None)
Quarter: 2011Q3

REPORT INFORMATION
  Report Type: 
  Country: None (occurrence: None)
  Receive Date: 20110803
  Receipt Date: 20110726
  Transmission Date: 20111222
  Serious: Yes (Hospitalization)
  Sender: FDA-Public Use
  Company Number: US-PFIZER INC-2011168825

PATIENT
  Sex: Male
  Weight: 59.4 kg

DRUGS (3)
  1. SUTENT [Suspect]
     Indication: BLADDER CANCER
     Dosage: 25 MG, 1X/DAY, ORAL X 14 DAYS OF 21 DAY CYCLE
     Route: 048
     Dates: start: 20110331, end: 20110720
  2. CISPLATIN [Concomitant]
     Dosage: 50 MG/M2, EVERY 21 DAYS
     Dates: start: 20110331, end: 20110707
  3. GEMZAR [Concomitant]
     Dosage: 600 MG/M2, EVERY 21 DAYS
     Dates: start: 20110331, end: 20110714

REACTIONS (1)
  - SYNCOPE [None]
